FAERS Safety Report 4435153-2 (Version None)
Quarter: 2004Q3

REPORT INFORMATION
  Report Type: 
  Country: None (occurrence: None)
  Receive Date: 20040826
  Receipt Date: 20040826
  Transmission Date: 20050211
  Serious: No
  Sender: FDA-Public Use
  Company Number: None

PATIENT
  Age: 45 Year
  Sex: Female
  Weight: 54.4316 kg

DRUGS (3)
  1. NAPHAZOLINE HCL [Suspect]
     Indication: KERATOCONJUNCTIVITIS SICCA
     Dosage: 2-3 DROPS ONCE OPHTHALMIC
     Route: 047
     Dates: start: 20040823, end: 20040823
  2. CLEAR EYES [Concomitant]
  3. NAPHAZOLINE HCL [Concomitant]

REACTIONS (3)
  - MYDRIASIS [None]
  - PHARMACEUTICAL PRODUCT COMPLAINT [None]
  - PUPILLARY REFLEX IMPAIRED [None]
